FAERS Safety Report 7371447-9 (Version None)
Quarter: 2011Q1

REPORT INFORMATION
  Report Type: 
  Country: None (occurrence: None)
  Receive Date: 20110324
  Receipt Date: 20110318
  Transmission Date: 20110831
  Serious: Yes (Other)
  Sender: FDA-Public Use
  Company Number: FR-BRISTOL-MYERS SQUIBB COMPANY-15509466

PATIENT
  Age: 36 Year
  Sex: Female
  Weight: 72 kg

DRUGS (5)
  1. DEPAMIDE [Concomitant]
     Indication: AFFECTIVE DISORDER
     Route: 048
     Dates: start: 20090101
  2. PARKINANE [Concomitant]
     Indication: EXTRAPYRAMIDAL DISORDER
     Route: 048
     Dates: start: 20090101
  3. SEROPLEX [Concomitant]
     Indication: DEPRESSION
     Route: 048
     Dates: start: 20090101
  4. LEXOMIL [Concomitant]
     Indication: ANXIETY
     Route: 048
     Dates: start: 20090101
  5. ABILIFY [Suspect]
     Indication: PSYCHOTIC DISORDER
     Route: 048
     Dates: start: 20100812

REACTIONS (3)
  - HYPERPROLACTINAEMIA [None]
  - GALACTORRHOEA [None]
  - AMENORRHOEA [None]
